FAERS Safety Report 4507631-9 (Version None)
Quarter: 2004Q3

REPORT INFORMATION
  Report Type: 
  Country: None (occurrence: None)
  Receive Date: 20040928
  Receipt Date: 20040802
  Transmission Date: 20050211
  Serious: Yes (Hospitalization)
  Sender: FDA-Public Use
  Company Number: 04P-163-0268648-00

PATIENT
  Age: 56 Year
  Sex: Female
  Weight: 95.2554 kg

DRUGS (13)
  1. HUMIRA [Suspect]
     Indication: RHEUMATOID ARTHRITIS
     Dosage: 40 MG, 1 IN 2 WK, SUBCUTANEOUS
     Route: 058
     Dates: start: 20040301, end: 20040723
  2. DIPHENHYDRAMINE HYDROCHLORIDE [Concomitant]
  3. DILTIAZEM HYDROCHLORIDE [Concomitant]
  4. TOLTERODINE TARTRATE [Concomitant]
  5. FOLIC ACID [Concomitant]
  6. MORPHINE SULFATE [Concomitant]
  7. METHOTREXATE [Concomitant]
  8. PANTOPRAZOLE [Concomitant]
  9. FLUOXETINE HYDROCHLORIDE [Concomitant]
  10. METHYLPHENIDATE HCL [Concomitant]
  11. LEVOTHYROXINE SODIUM [Concomitant]
  12. CHLORPROMAZINE HYDROCHLORIDE [Concomitant]
  13. MULTI-VITAMINS [Concomitant]

REACTIONS (1)
  - CHOLECYSTITIS INFECTIVE [None]
